FAERS Safety Report 10035861 (Version 1)
Quarter: 2014Q1

REPORT INFORMATION
  Report Type: Spontaneous
  Country: US (occurrence: None)
  Receive Date: 20140306
  Receipt Date: 20140306
  Transmission Date: 20141002
  Serious: Yes (Other)
  Sender: FDA-Public Use
  Company Number: 163-21880-12121702

PATIENT
  Age: 72 Year
  Sex: Male
  Weight: 73.48 kg

DRUGS (5)
  1. REVLIMID (LENALIDOMIDE) (10 MILLIGRAM, CAPSULES) [Suspect]
     Indication: MYELODYSPLASTIC SYNDROME
     Dosage: 10 MG, 21 IN 28 D, PO
     Route: 048
     Dates: start: 20120418, end: 20120710
  2. LISINOPRIL (LISINOPRIL) [Concomitant]
  3. PRILOSEC (OMEPRAZOLE) [Concomitant]
  4. KLOR-CON (POTASSIUM CHLORIDE) [Concomitant]
  5. AGRYLIN (ANAGRELIDE HYDROCHLORIDE) [Concomitant]

REACTIONS (6)
  - Neutrophil count decreased [None]
  - Pancytopenia [None]
  - Sinusitis [None]
  - Drug ineffective [None]
  - Haemoglobin decreased [None]
  - Platelet count decreased [None]
